FAERS Safety Report 7679466-X (Version None)
Quarter: 2011Q3

REPORT INFORMATION
  Report Type: 
  Country: None (occurrence: None)
  Receive Date: 20110812
  Receipt Date: 20110812
  Transmission Date: 20111222
  Serious: Yes (Disabling)
  Sender: FDA-Public Use
  Company Number: None

PATIENT
  Age: 64 Year
  Sex: Female
  Weight: 62.142 kg

DRUGS (5)
  1. DEXAMETHASONE [Concomitant]
     Route: 042
  2. CYCLOPHOSPHAMIDE [Concomitant]
     Route: 042
  3. DOCETAXEL [Concomitant]
     Route: 042
  4. PALOSETRON -ALOXI [Concomitant]
     Route: 042
  5. EMEND [Suspect]
     Indication: PROPHYLAXIS OF NAUSEA AND VOMITING
     Dosage: 150 MG
     Route: 041
     Dates: start: 20110526, end: 20110727

REACTIONS (2)
  - RASH [None]
  - MALAISE [None]
